FAERS Safety Report 25849302 (Version 1)
Quarter: 2025Q3

REPORT INFORMATION
  Report Type: Spontaneous
  Country: EU (occurrence: EU)
  Receive Date: 20250925
  Receipt Date: 20250925
  Transmission Date: 20251021
  Serious: Yes (Hospitalization)
  Sender: JOHNSON AND JOHNSON
  Company Number: EU-JNJFOC-20250934396

PATIENT
  Age: 65 Year
  Sex: Male

DRUGS (7)
  1. INVOKANA [Suspect]
     Active Substance: CANAGLIFLOZIN
     Indication: Diabetes mellitus
     Route: 048
     Dates: start: 20240828, end: 20250623
  2. METFORMIN HYDROCHLORIDE [Concomitant]
     Active Substance: METFORMIN HYDROCHLORIDE
     Indication: Diabetes mellitus
  3. RYBELSUS [Concomitant]
     Active Substance: SEMAGLUTIDE
     Indication: Diabetes mellitus
     Route: 048
  4. Rosuvastatine/Ezetimib [Concomitant]
     Indication: Product used for unknown indication
     Route: 048
  5. HYDROCHLOROTHIAZIDE\LOSARTAN [Concomitant]
     Active Substance: HYDROCHLOROTHIAZIDE\LOSARTAN
     Indication: Product used for unknown indication
     Route: 048
  6. Allopurinole [Concomitant]
     Indication: Product used for unknown indication
     Route: 048
  7. LACIDIPINE [Concomitant]
     Active Substance: LACIDIPINE
     Indication: Product used for unknown indication
     Route: 038

REACTIONS (3)
  - Acute kidney injury [Unknown]
  - Sepsis [Unknown]
  - Fournier^s gangrene [Recovered/Resolved]

NARRATIVE: CASE EVENT DATE: 20250623
